FAERS Safety Report 8573255-X (Version None)
Quarter: 2012Q2

REPORT INFORMATION
  Report Type: 
  Country: None (occurrence: None)
  Receive Date: 20120423
  Receipt Date: 20090603
  Transmission Date: 20120825
  Serious: Yes (Death, Hospitalization)
  Sender: FDA-Public Use
  Company Number: PHEH2009US05734

PATIENT
  Age: 84 Year
  Sex: Female
  Weight: 57 kg

DRUGS (2)
  1. EXJADE [Suspect]
     Indication: HAEMOCHROMATOSIS
  2. EXJADE [Suspect]
     Indication: MYELODYSPLASTIC SYNDROME

REACTIONS (2)
  - CARDIAC ARREST [None]
  - MYELODYSPLASTIC SYNDROME [None]
